FAERS Safety Report 22135619 (Version 2)
Quarter: 2023Q2

REPORT INFORMATION
  Report Type: Spontaneous
  Country: CN (occurrence: CN)
  Receive Date: 20230324
  Receipt Date: 20230505
  Transmission Date: 20230722
  Serious: Yes (Other)
  Sender: FDA-Public Use
  Company Number: CN-002147023-NVSC2023CN065459

PATIENT
  Sex: Male

DRUGS (2)
  1. ENTRESTO [Suspect]
     Active Substance: SACUBITRIL\VALSARTAN
     Indication: Product used for unknown indication
     Dosage: 1 DOSAGE FORM, 1 TABLET EACH TIME
     Route: 048
  2. ENTRESTO [Suspect]
     Active Substance: SACUBITRIL\VALSARTAN
     Dosage: 1.2-1.5 TABLETS EACH TIME
     Route: 048

REACTIONS (6)
  - Hyperthyroidism [Unknown]
  - Pain [Unknown]
  - Gynaecomastia [Unknown]
  - Breast mass [Unknown]
  - Counterfeit product administered [Unknown]
  - Wrong technique in product usage process [Unknown]
